FAERS Safety Report 7191546-4 (Version None)
Quarter: 2010Q4

REPORT INFORMATION
  Report Type: 
  Country: None (occurrence: None)
  Receive Date: 20101223
  Receipt Date: 20101216
  Transmission Date: 20110411
  Serious: Yes (Hospitalization, Other)
  Sender: FDA-Public Use
  Company Number: JP-ROCHE-730715

PATIENT
  Sex: Male
  Weight: 71 kg

DRUGS (13)
  1. AVASTIN [Suspect]
     Indication: LUNG ADENOCARCINOMA
     Route: 041
     Dates: start: 20100615, end: 20100615
  2. AVASTIN [Suspect]
     Route: 041
     Dates: start: 20100712, end: 20100712
  3. AVASTIN [Suspect]
     Route: 041
     Dates: start: 20100805, end: 20100805
  4. AVASTIN [Suspect]
     Route: 041
     Dates: start: 20100827, end: 20100924
  5. AVASTIN [Suspect]
     Dosage: DOSAGE IS UNCERTAIN
     Route: 041
     Dates: start: 20101013
  6. CISPLATIN [Concomitant]
     Dosage: NOTE: DOSAGE IS UNCERTAIN.
     Route: 041
     Dates: start: 20100615, end: 20100924
  7. ALIMTA [Concomitant]
     Route: 041
     Dates: start: 20100615, end: 20100924
  8. ANALGESIC OR NSAID [Concomitant]
     Dosage: NOTE: DOSAGE IS UNCERTAIN; DRUG NAME REPORTED :ANTIPYRETICS, ANALGESICS AND ANTI-INFLAMMATORY AGENTS
     Route: 065
  9. OXYCONTIN [Concomitant]
     Route: 048
     Dates: start: 20100501
  10. LOXONIN [Concomitant]
     Route: 048
     Dates: start: 20100501
  11. PANVITAN [Concomitant]
     Route: 048
     Dates: start: 20100601
  12. NORVASC [Concomitant]
     Route: 048
     Dates: start: 20100601
  13. MAGMITT [Concomitant]
     Route: 048
     Dates: start: 20100615

REACTIONS (7)
  - ANAL ABSCESS [None]
  - CONSTIPATION [None]
  - DEHYDRATION [None]
  - DISSEMINATED INTRAVASCULAR COAGULATION [None]
  - HAEMATOCHEZIA [None]
  - PYREXIA [None]
  - RENAL IMPAIRMENT [None]
